FAERS Safety Report 8960130 (Version 5)
Quarter: 2013Q1

REPORT INFORMATION
  Report Type: Spontaneous
  Country: IN (occurrence: IN)
  Receive Date: 20121212
  Receipt Date: 20130228
  Transmission Date: 20140127
  Serious: Yes (Hospitalization, Other)
  Sender: FDA-Public Use
  Company Number: PHHY2012IN113482

PATIENT
  Age: 73 Year
  Sex: Female

DRUGS (45)
  1. ACLASTA [Suspect]
     Indication: OSTEOPOROTIC FRACTURE
     Dosage: 5 MG, UNK
     Route: 042
     Dates: start: 20120413
  2. ENZOFLAM [Concomitant]
     Dosage: UNK UKN, UNK
  3. PARACIP [Concomitant]
     Dosage: UNK UKN, UNK
  4. EMESET [Concomitant]
     Dosage: UNK UKN, UNK
  5. RANIPEP [Concomitant]
     Dosage: UNK UKN, UNK
  6. ZOCEF//CEFUROXIME AXETIL [Concomitant]
     Dosage: UNK UKN, UNK
  7. NOZIA [Concomitant]
     Dosage: UNK UKN, UNK
  8. TRANEXAMIC ACID [Concomitant]
     Dosage: UNK UKN, UNK
  9. FORTWIN//PENTAZOCINE HYDROCHLORIDE [Concomitant]
     Dosage: UNK UKN, UNK
  10. PHENERGAN ^RHONE-POULENC^ [Concomitant]
     Dosage: UNK UKN, UNK
  11. TRAMAZAC [Concomitant]
     Dosage: UNK UKN, UNK
  12. PANPURE [Concomitant]
     Dosage: UNK UKN, UNK
  13. ALLEGRA [Concomitant]
     Dosage: UNK UKN, UNK
  14. PROXYM [Concomitant]
     Dosage: UNK UKN, UNK
  15. OPARA [Concomitant]
     Dosage: UNK UKN, UNK
  16. ENZOMAC [Concomitant]
     Dosage: UNK UKN, UNK
  17. FERRI [Concomitant]
     Dosage: UNK UKN, UNK
  18. ZYTEE [Concomitant]
     Dosage: UNK UKN, UNK
  19. VIBACT (PRE + PROBIOTIC CAPSULES) [Concomitant]
     Dosage: UNK UKN, UNK
  20. ELDERVIT//ASCORBIC ACID [Concomitant]
     Dosage: UNK UKN, UNK
  21. TINIBA [Concomitant]
     Dosage: UNK UKN, UNK
  22. CARDACE [Concomitant]
     Dosage: UNK UKN, UNK
  23. GLYCOMET [Concomitant]
  24. A TO Z [Concomitant]
  25. DECA DURABOLIN [Concomitant]
  26. OROFER-XT//FERROUS ASCORBATE [Concomitant]
  27. DULOT [Concomitant]
  28. AMIKACIN [Concomitant]
     Dosage: 2 DF, UNK
  29. RANTAC [Concomitant]
  30. SERENACE [Concomitant]
     Dosage: UNK UKN, UNK
  31. RESTYL [Concomitant]
  32. ECOFLOX [Concomitant]
  33. PANTODAC [Concomitant]
  34. GEMCAL [Concomitant]
  35. HEPARIN LMW [Concomitant]
  36. RISOVIN [Concomitant]
  37. QUTIPIN [Concomitant]
  38. POTASSIUM CHLORIDE [Concomitant]
  39. AMLONG [Concomitant]
  40. RISONEL [Concomitant]
  41. MUCAINE [Concomitant]
  42. FLUORID [Concomitant]
  43. FOLVITE [Concomitant]
  44. ETOGESIC [Concomitant]
  45. LOMORIN [Concomitant]

REACTIONS (17)
  - Fall [Unknown]
  - Femur fracture [Unknown]
  - Local swelling [Unknown]
  - Femoral neck fracture [Unknown]
  - Tenderness [Unknown]
  - Joint swelling [Unknown]
  - Pain [Unknown]
  - Arthralgia [Unknown]
  - Haemoglobin decreased [Unknown]
  - Scar [Unknown]
  - Blood glucose increased [Unknown]
  - Blood alkaline phosphatase decreased [Unknown]
  - Red blood cell count decreased [Unknown]
  - Blood sodium decreased [Unknown]
  - Blood urea increased [Unknown]
  - Albumin urine present [Unknown]
  - Haematocrit decreased [Unknown]
